FAERS Safety Report 6701416-0 (Version None)
Quarter: 2010Q2

REPORT INFORMATION
  Report Type: 
  Country: None (occurrence: None)
  Receive Date: 20100429
  Receipt Date: 20100415
  Transmission Date: 20101027
  Serious: Yes (Hospitalization)
  Sender: FDA-Public Use
  Company Number: CI-RANBAXY-2010RR-32614

PATIENT
  Age: 44 Year
  Sex: Male
  Weight: 68 kg

DRUGS (10)
  1. STAVUDINE [Suspect]
     Indication: HIV INFECTION
     Dosage: UNK
     Dates: start: 20001001
  2. LAMIVUDINE [Suspect]
     Indication: HIV INFECTION
     Dosage: UNK
     Dates: start: 20001001
  3. LAMIVUDINE [Suspect]
     Dosage: UNK
     Dates: start: 20020801
  4. LAMIVUDINE [Suspect]
     Dosage: UNK
     Dates: start: 20040201
  5. NELFINAVIR MESYLATE [Suspect]
     Indication: HIV INFECTION
     Dosage: UNK
     Dates: start: 20001001
  6. ZIDOVUDINE [Suspect]
     Indication: HIV INFECTION
     Dosage: UNK
     Dates: start: 20020801
  7. DIDANOSINE [Suspect]
     Indication: HIV INFECTION
     Dosage: UNK
     Dates: start: 20020801
  8. ABACAVIR SULFATE [Suspect]
     Indication: HIV INFECTION
  9. LOPINAVIR AND RITONAVIR [Suspect]
     Indication: HIV INFECTION
     Dosage: UNK
     Dates: start: 20040201
  10. INDINAVIR/RITONAVIR [Suspect]
     Indication: HIV INFECTION

REACTIONS (1)
  - OSTEONECROSIS [None]
